FAERS Safety Report 14851804 (Version 1)
Quarter: 2018Q2

REPORT INFORMATION
  Report Type: Spontaneous
  Country: FR (occurrence: FR)
  Receive Date: 20180507
  Receipt Date: 20180507
  Transmission Date: 20180711
  Serious: Yes (Other)
  Sender: FDA-Public Use
  Company Number: FR-MERCK KGAA-2047269

PATIENT
  Age: 53 Year
  Sex: Female

DRUGS (1)
  1. NOVOTHYROX [Suspect]
     Active Substance: LEVOTHYROXINE SODIUM
     Indication: PRODUCT USED FOR UNKNOWN INDICATION

REACTIONS (20)
  - Bone pain [None]
  - Pain in extremity [None]
  - Aggression [None]
  - Irritability [None]
  - Thyroid function test abnormal [None]
  - Flatulence [None]
  - Paraesthesia [None]
  - Hyperglycaemia [None]
  - Angina pectoris [None]
  - Anger [None]
  - Dysstasia [None]
  - Vulvovaginal dryness [None]
  - Heart rate decreased [None]
  - Respiratory disorder [None]
  - Ill-defined disorder [None]
  - Abdominal pain upper [None]
  - Muscle spasms [None]
  - Dry skin [None]
  - Nervousness [None]
  - Frequent bowel movements [None]

NARRATIVE: CASE EVENT DATE: 20170213
